FAERS Safety Report 8601066-5 (Version None)
Quarter: 2012Q3

REPORT INFORMATION
  Report Type: 
  Country: None (occurrence: None)
  Receive Date: 20120817
  Receipt Date: 20120810
  Transmission Date: 20120928
  Serious: Yes (Other)
  Sender: FDA-Public Use
  Company Number: US-B.I. PHARMACEUTICALS,INC./RIDGEFIELD-2012-EU-04082GD

PATIENT
  Age: 57 Year
  Sex: Male

DRUGS (4)
  1. VERAPAMIL [Suspect]
  2. FLECAINIDE ACETATE [Concomitant]
  3. DABIGATRAN [Suspect]
     Indication: ATRIAL FIBRILLATION
     Dosage: 300 MG
     Route: 048
  4. ASPIRIN [Suspect]
     Indication: ATRIAL FIBRILLATION
     Dosage: 81 MG

REACTIONS (6)
  - CARPAL TUNNEL SYNDROME [None]
  - PAIN IN EXTREMITY [None]
  - PARAESTHESIA [None]
  - HAEMATOMA [None]
  - HYPOAESTHESIA [None]
  - HAEMORRHAGE [None]
